FAERS Safety Report 9021259 (Version 2)
Quarter: 2013Q1

REPORT INFORMATION
  Report Type: Report from Study
  Country: US (occurrence: US)
  Receive Date: 20130119
  Receipt Date: 20130222
  Transmission Date: 20140127
  Serious: Yes (Hospitalization, Other)
  Sender: FDA-Public Use
  Company Number: US-US-EMD SERONO, INC.-7187939

PATIENT
  Sex: Female
  Weight: 78 kg

DRUGS (1)
  1. REBIF [Suspect]
     Indication: MULTIPLE SCLEROSIS
     Route: 058
     Dates: start: 200903

REACTIONS (8)
  - Meningioma [Not Recovered/Not Resolved]
  - Hernia [Recovered/Resolved]
  - Thrombosis [Unknown]
  - Post procedural haematoma [Unknown]
  - Non-alcoholic steatohepatitis [Not Recovered/Not Resolved]
  - Multiple sclerosis relapse [Unknown]
  - Diarrhoea [Unknown]
  - Injection site pain [Not Recovered/Not Resolved]
